FAERS Safety Report 4840071-1 (Version None)
Quarter: 2005Q4

REPORT INFORMATION
  Report Type: 
  Country: None (occurrence: None)
  Receive Date: 20051125
  Receipt Date: 20051104
  Transmission Date: 20060501
  Serious: Yes (Hospitalization)
  Sender: FDA-Public Use
  Company Number: S05-ESP-05322-01

PATIENT
  Age: 89 Year
  Sex: Female

DRUGS (6)
  1. CIPRALEX (ESCITALOPRAM) [Suspect]
     Indication: DEPRESSION
     Dosage: 5 MG PO
     Route: 048
     Dates: start: 20050621, end: 20050701
  2. INDAPAMIDE [Suspect]
     Indication: ESSENTIAL HYPERTENSION
     Dates: end: 20050627
  3. NOCTAMID (LORMETAZEPAM) [Concomitant]
  4. GABAPENTIN [Concomitant]
  5. TIMOFTOL (TIMOLOL MALEATE) [Concomitant]
  6. DIAMICRON (GLICLAZIDE) [Concomitant]

REACTIONS (4)
  - CEREBRAL ATROPHY [None]
  - CEREBRAL ISCHAEMIA [None]
  - HYPOKALAEMIA [None]
  - HYPONATRAEMIA [None]
